FAERS Safety Report 8555498-4 (Version None)
Quarter: 2012Q3

REPORT INFORMATION
  Report Type: 
  Country: None (occurrence: None)
  Receive Date: 20120731
  Receipt Date: 20120105
  Transmission Date: 20120928
  Serious: No
  Sender: FDA-Public Use
  Company Number: US-ASTRAZENECA-2011SE05426

PATIENT
  Age: 51 Year
  Sex: Male
  Weight: 74.8 kg

DRUGS (10)
  1. VENTOLIN [Concomitant]
  2. LITHIUM CARBONATE [Concomitant]
  3. VIVASTIN [Concomitant]
     Dosage: EVERY MORNING
  4. WELLBUTRIN [Concomitant]
  5. SEROQUEL [Suspect]
     Route: 048
     Dates: end: 20110101
  6. BENZONATATE [Concomitant]
  7. LITHIUM CARBONATE [Concomitant]
  8. MELOXICAM [Concomitant]
     Indication: ARTHRITIS
  9. SEROQUEL [Suspect]
     Indication: BIPOLAR DISORDER
     Route: 048
     Dates: start: 20090101, end: 20090101
  10. SEROQUEL [Suspect]
     Route: 048
     Dates: start: 20110101

REACTIONS (12)
  - DRUG INEFFECTIVE [None]
  - FALL [None]
  - MUSCULOSKELETAL DISCOMFORT [None]
  - BACK DISORDER [None]
  - JOINT INJURY [None]
  - MALAISE [None]
  - ANXIETY [None]
  - INSOMNIA [None]
  - HEADACHE [None]
  - BRONCHITIS [None]
  - MUSCULOSKELETAL STIFFNESS [None]
  - WEIGHT INCREASED [None]
